FAERS Safety Report 10159868 (Version 1)
Quarter: 2014Q2

REPORT INFORMATION
  Report Type: Spontaneous
  Country: SG (occurrence: SG)
  Receive Date: 20140508
  Receipt Date: 20140508
  Transmission Date: 20141212
  Serious: Yes (Other)
  Sender: FDA-Public Use
  Company Number: SG-ABBVIE-14P-141-1235296-00

PATIENT
  Age: 23 Year
  Sex: Female

DRUGS (3)
  1. KLACID [Suspect]
     Indication: PRODUCT USED FOR UNKNOWN INDICATION
  2. BRUFEN [Suspect]
     Indication: PRODUCT USED FOR UNKNOWN INDICATION
  3. ANAREX [Suspect]
     Indication: PRODUCT USED FOR UNKNOWN INDICATION

REACTIONS (3)
  - Face oedema [Unknown]
  - Rash [Unknown]
  - Urticaria [Unknown]
